FAERS Safety Report 6838569-X (Version None)
Quarter: 2010Q3

REPORT INFORMATION
  Report Type: 
  Country: None (occurrence: None)
  Receive Date: 20100713
  Receipt Date: 20070614
  Transmission Date: 20110219
  Serious: No
  Sender: FDA-Public Use
  Company Number: US-PFIZER INC-2007049947

PATIENT
  Sex: Female
  Weight: 66.818 kg

DRUGS (5)
  1. CHANTIX [Suspect]
     Indication: SMOKING CESSATION THERAPY
     Dates: start: 20070606
  2. ALL OTHER THERAPEUTIC PRODUCTS [Concomitant]
     Indication: MACULAR DEGENERATION
  3. ALL OTHER THERAPEUTIC PRODUCTS [Concomitant]
  4. LOVASTATIN [Concomitant]
  5. VITAMINS [Concomitant]

REACTIONS (1)
  - VISUAL IMPAIRMENT [None]
